FAERS Safety Report 15661832 (Version 1)
Quarter: 2018Q4

REPORT INFORMATION
  Report Type: Spontaneous
  Country: CA (occurrence: CA)
  Receive Date: 20181127
  Receipt Date: 20181127
  Transmission Date: 20190205
  Serious: Yes (Hospitalization, Other)
  Sender: FDA-Public Use
  Company Number: CA-NATCO PHARMA-2018NAT00149

PATIENT
  Age: 45 Year
  Sex: Female

DRUGS (1)
  1. CHLOROQUINE PHOSPHATE. [Suspect]
     Active Substance: CHLOROQUINE PHOSPHATE
     Indication: PALINDROMIC RHEUMATISM
     Dosage: 250 MG, 1X/DAY
     Route: 048

REACTIONS (10)
  - Bradycardia [Recovered/Resolved]
  - Cardiomyopathy [Recovered/Resolved]
  - Ventricular hypertrophy [Recovered/Resolved]
  - Kidney congestion [Recovered/Resolved]
  - Mitral valve incompetence [Unknown]
  - Cardiotoxicity [Unknown]
  - Tricuspid valve incompetence [Recovering/Resolving]
  - Acute kidney injury [Recovered/Resolved]
  - Bifascicular block [Recovered/Resolved]
  - Cardiac failure [Recovering/Resolving]
